FAERS Safety Report 10078867 (Version 1)
Quarter: 2014Q2

REPORT INFORMATION
  Report Type: Spontaneous
  Country: US (occurrence: US)
  Receive Date: 20140415
  Receipt Date: 20140415
  Transmission Date: 20141212
  Serious: Yes (Other)
  Sender: FDA-Public Use
  Company Number: US-ABBVIE-14P-163-1223420-00

PATIENT
  Sex: Male

DRUGS (1)
  1. ANDROGEL [Suspect]
     Indication: PRODUCT USED FOR UNKNOWN INDICATION

REACTIONS (6)
  - Vision blurred [Unknown]
  - Blood urine present [Unknown]
  - Myocardial infarction [Unknown]
  - Hypertension [Unknown]
  - Prostate cancer [Unknown]
  - Sleep apnoea syndrome [Unknown]
